FAERS Safety Report 5742274-0 (Version None)
Quarter: 2008Q2

REPORT INFORMATION
  Report Type: 
  Country: None (occurrence: None)
  Receive Date: 20080514
  Receipt Date: 20080514
  Transmission Date: 20081010
  Serious: Yes (Other)
  Sender: FDA-Public Use
  Company Number: None

PATIENT
  Age: 30 Year
  Sex: Female
  Weight: 99.7913 kg

DRUGS (1)
  1. DIGOXIN [Suspect]
     Indication: SUPRAVENTRICULAR TACHYCARDIA
     Dosage: .25 MG 4 TIMES FOR 1 DAY PO;  .25 MG 1 TIME DAILY PO
     Route: 048
     Dates: start: 20080201, end: 20080404

REACTIONS (2)
  - HEART RATE ABNORMAL [None]
  - PHARMACEUTICAL PRODUCT COMPLAINT [None]
